FAERS Safety Report 5140183-1 (Version None)
Quarter: 2006Q4

REPORT INFORMATION
  Report Type: 
  Country: None (occurrence: None)
  Receive Date: 20061031
  Receipt Date: 20060301
  Transmission Date: 20070319
  Serious: Yes (Hospitalization)
  Sender: FDA-Public Use
  Company Number: JP-BRISTOL-MYERS SQUIBB COMPANY-13308630

PATIENT
  Age: 33 Year
  Sex: Male

DRUGS (4)
  1. EFAVIRENZ [Suspect]
     Indication: HIV INFECTION
     Route: 048
     Dates: start: 20040423
  2. COMBIVIR [Suspect]
     Indication: HIV INFECTION
     Route: 048
     Dates: start: 20040423, end: 20040715
  3. DENOSINE [Concomitant]
     Dosage: THERAPY STOPPED AND RESTARTED ON 02-JUN-2004, STOPPED UNSPEC. DATE, RESTARTED 09-JUN-2004.
     Route: 042
     Dates: start: 20040513, end: 20040609
  4. DENOSINE [Concomitant]
     Route: 048
     Dates: start: 20040609, end: 20040708

REACTIONS (4)
  - ANAEMIA [None]
  - CYTOMEGALOVIRUS CHORIORETINITIS [None]
  - CYTOMEGALOVIRUS ENTEROCOLITIS [None]
  - DRUG ERUPTION [None]
